FAERS Safety Report 12329758 (Version 2)
Quarter: 2016Q2

REPORT INFORMATION
  Report Type: Report from Study
  Country: US (occurrence: US)
  Receive Date: 20160503
  Receipt Date: 20160517
  Transmission Date: 20160815
  Serious: Yes (Congenital Anomaly)
  Sender: FDA-Public Use
  Company Number: US-TAKEDA-2016TUS007510

PATIENT
  Age: 2 Month
  Sex: Male
  Weight: 4.96 kg

DRUGS (1)
  1. VEDOLIZUMAB [Suspect]
     Active Substance: VEDOLIZUMAB
     Indication: PRODUCT USED FOR UNKNOWN INDICATION
     Dosage: UNK
     Route: 065

REACTIONS (1)
  - Congenital diaphragmatic hernia [Recovered/Resolved]

NARRATIVE: CASE EVENT DATE: 20160221
